FAERS Safety Report 5893579-4 (Version None)
Quarter: 2008Q3

REPORT INFORMATION
  Report Type: 
  Country: None (occurrence: None)
  Receive Date: 20080918
  Receipt Date: 20071105
  Transmission Date: 20090109
  Serious: Yes (Other)
  Sender: FDA-Public Use
  Company Number: 6045690

PATIENT
  Age: 42 Year
  Sex: Male

DRUGS (2)
  1. BISOPROLOL FUMARATE [Suspect]
     Indication: DRUG USE FOR UNKNOWN INDICATION
     Dosage: 5 MG (5 MG)
     Dates: start: 20071008, end: 20071015
  2. LISINOPRIL [Concomitant]

REACTIONS (1)
  - LIP SWELLING [None]
